FAERS Safety Report 4401320-7 (Version None)
Quarter: 2004Q3

REPORT INFORMATION
  Report Type: 
  Country: None (occurrence: None)
  Receive Date: 20040907
  Receipt Date: 20040305
  Transmission Date: 20050211
  Serious: No
  Sender: FDA-Public Use
  Company Number: US-BRISTOL-MYERS SQUIBB COMPANY-12525408

PATIENT
  Age: 73 Year
  Sex: Male
  Weight: 127 kg

DRUGS (6)
  1. COUMADIN [Suspect]
     Indication: ARRHYTHMIA
     Dosage: DOSE DECREASED 7.5MG/3DAYS/WEEK AND 2.5MG/REST OF WEEK.
     Route: 048
     Dates: start: 20040201, end: 20040304
  2. COZAAR [Concomitant]
     Dosage: FOR ^AWHILE^
  3. FLOMAX [Concomitant]
     Dosage: FOR ^AWHILE^
  4. ATENOLOL [Concomitant]
     Route: 048
  5. ASPIRIN [Concomitant]
  6. VIOXX [Concomitant]
     Dosage: DAILY FOR ONE YEAR

REACTIONS (1)
  - CONTUSION [None]
